FAERS Safety Report 22948452 (Version 4)
Quarter: 2023Q4

REPORT INFORMATION
  Report Type: Report from Study
  Country: FR (occurrence: FR)
  Receive Date: 20230915
  Receipt Date: 20231013
  Transmission Date: 20240110
  Serious: Yes (Other)
  Sender: FDA-Public Use
  Company Number: FR-DSJP-DSE-2023-137704

PATIENT
  Age: 60 Year
  Sex: Female
  Weight: 62 kg

DRUGS (2)
  1. ENHERTU [Suspect]
     Active Substance: FAM-TRASTUZUMAB DERUXTECAN-NXKI
     Indication: HER2 positive breast cancer
     Dosage: 5.4 MG/KG, CYCLIC
     Route: 065
     Dates: start: 20230216, end: 20230621
  2. ENHERTU [Suspect]
     Active Substance: FAM-TRASTUZUMAB DERUXTECAN-NXKI
     Indication: Breast cancer metastatic
     Dosage: 4.4 MG/KG, CYCLIC
     Route: 065
     Dates: start: 20230707

REACTIONS (6)
  - Drug intolerance [Unknown]
  - Impaired quality of life [Unknown]
  - Fatigue [Unknown]
  - Nausea [Unknown]
  - Fatigue [Unknown]
  - Intentional product use issue [Not Recovered/Not Resolved]

NARRATIVE: CASE EVENT DATE: 20230707
